FAERS Safety Report 25833981 (Version 1)
Quarter: 2025Q3

REPORT INFORMATION
  Report Type: Spontaneous
  Country: US (occurrence: US)
  Receive Date: 20250923
  Receipt Date: 20250923
  Transmission Date: 20251021
  Serious: No
  Sender: ABBVIE
  Company Number: US-ABBVIE-6469137

PATIENT
  Age: 60 Year
  Sex: Female

DRUGS (1)
  1. RINVOQ [Suspect]
     Active Substance: UPADACITINIB
     Indication: Psoriasis
     Route: 048
     Dates: start: 2025

REACTIONS (8)
  - Off label use [Unknown]
  - Urinary tract infection [Unknown]
  - Stress [Unknown]
  - Back pain [Unknown]
  - Dysstasia [Unknown]
  - Malaise [Unknown]
  - Insomnia [Recovered/Resolved]
  - Lower limb fracture [Unknown]

NARRATIVE: CASE EVENT DATE: 20250101
